FAERS Safety Report 26138774 (Version 1)
Quarter: 2025Q4

REPORT INFORMATION
  Report Type: Report from Study
  Country: EU (occurrence: EU)
  Receive Date: 20251210
  Receipt Date: 20251210
  Transmission Date: 20260117
  Serious: Yes (Other)
  Sender: ABBVIE
  Company Number: EU-ABBVIE-6580553

PATIENT
  Sex: Female

DRUGS (3)
  1. FOSCARBIDOPA\FOSLEVODOPA [Suspect]
     Active Substance: FOSCARBIDOPA\FOSLEVODOPA
     Indication: Parkinson^s disease
     Route: 058
     Dates: start: 20250110, end: 20250110
  2. FOSCARBIDOPA\FOSLEVODOPA [Suspect]
     Active Substance: FOSCARBIDOPA\FOSLEVODOPA
     Route: 058
     Dates: start: 202502
  3. INSULIN NOS [Concomitant]
     Active Substance: INSULIN NOS
     Indication: Product used for unknown indication

REACTIONS (14)
  - Surgery [Unknown]
  - Overdose [Unknown]
  - On and off phenomenon [Recovered/Resolved]
  - Tremor [Unknown]
  - Poor quality sleep [Unknown]
  - Movement disorder [Recovered/Resolved]
  - Therapeutic response shortened [Unknown]
  - Fatigue [Unknown]
  - Stress [Unknown]
  - Illness [Unknown]
  - Asthenia [Unknown]
  - Psychiatric symptom [Unknown]
  - Anxiety [Unknown]
  - Hormone level abnormal [Unknown]

NARRATIVE: CASE EVENT DATE: 20250101
